FAERS Safety Report 6096349-X (Version None)
Quarter: 2009Q1

REPORT INFORMATION
  Report Type: 
  Country: None (occurrence: None)
  Receive Date: 20090227
  Receipt Date: 20090116
  Transmission Date: 20090719
  Serious: No
  Sender: FDA-Public Use
  Company Number: A0757241A

PATIENT
  Age: 25 Year
  Sex: Female
  Weight: 52.3 kg

DRUGS (3)
  1. LAMICTAL [Suspect]
     Indication: BIPOLAR DISORDER
     Dosage: 12.5MG PER DAY
     Route: 048
     Dates: start: 20081111, end: 20081114
  2. EFFEXOR [Concomitant]
     Indication: BIPOLAR DISORDER
     Dosage: 37.5MG PER DAY
     Route: 048
  3. SEROQUEL [Concomitant]
     Indication: BIPOLAR DISORDER
     Dosage: 50MG AT NIGHT
     Route: 048
     Dates: start: 20081113, end: 20081115

REACTIONS (1)
  - PRURITUS [None]
